FAERS Safety Report 6173075-X (Version None)
Quarter: 2009Q2

REPORT INFORMATION
  Report Type: 
  Country: None (occurrence: None)
  Receive Date: 20090430
  Receipt Date: 20090427
  Transmission Date: 20091009
  Serious: Yes (Hospitalization, Other)
  Sender: FDA-Public Use
  Company Number: US-ASTRAZENECA-2007UW15766

PATIENT
  Age: 18705 Day
  Sex: Male
  Weight: 111.1 kg

DRUGS (3)
  1. SEROQUEL [Suspect]
     Indication: SLEEP DISORDER
     Route: 048
     Dates: start: 20000306
  2. ZYPREXA [Concomitant]
     Dosage: 10 TO 20 MG
     Dates: start: 20010202, end: 20010301
  3. HALDOL [Concomitant]
     Dates: start: 20050101

REACTIONS (6)
  - BACK PAIN [None]
  - BLOOD CHOLESTEROL INCREASED [None]
  - DIABETES MELLITUS [None]
  - HYPERTENSION [None]
  - MENTAL DISORDER [None]
  - NEUROPATHY PERIPHERAL [None]
